FAERS Safety Report 6634228-7 (Version None)
Quarter: 2010Q1

REPORT INFORMATION
  Report Type: 
  Country: None (occurrence: None)
  Receive Date: 20100315
  Receipt Date: 20100308
  Transmission Date: 20100710
  Serious: Yes (Hospitalization)
  Sender: FDA-Public Use
  Company Number: CA-B.I. PHARMACEUTICALS,INC./RIDGEFIELD-2010-CN-00153CN

PATIENT
  Age: 30 Year
  Sex: Male

DRUGS (7)
  1. MIRAPEX [Suspect]
     Dosage: 0.75 MG
     Route: 065
  2. CYMBALTA [Suspect]
     Dosage: 60 MG
     Route: 065
  3. BACLOFEN [Concomitant]
     Route: 065
  4. COPAXONE [Concomitant]
     Route: 065
  5. LAMICTAL CD [Concomitant]
     Route: 065
  6. NEURONTIN [Concomitant]
     Route: 065
  7. PANTOPRAZOLE [Concomitant]
     Route: 065

REACTIONS (8)
  - ALCOHOL ABUSE [None]
  - APATHY [None]
  - COMPULSIONS [None]
  - COMPULSIVE SHOPPING [None]
  - DEPRESSED MOOD [None]
  - MORBID THOUGHTS [None]
  - PERSONALITY CHANGE [None]
  - SOMNOLENCE [None]
